FAERS Safety Report 4867257-4 (Version None)
Quarter: 2005Q4

REPORT INFORMATION
  Report Type: 
  Country: None (occurrence: None)
  Receive Date: 20051228
  Receipt Date: 20051221
  Transmission Date: 20060501
  Serious: Yes (Death, Hospitalization)
  Sender: FDA-Public Use
  Company Number: US-JNJFOC-20051204926

PATIENT
  Age: 47 Year
  Sex: Female

DRUGS (11)
  1. FENTANYL [Suspect]
     Indication: DRUG USE FOR UNKNOWN INDICATION
     Route: 065
  2. VALPROIC ACID [Concomitant]
     Indication: DRUG USE FOR UNKNOWN INDICATION
     Route: 048
  3. ANTILIPEMIC [Concomitant]
  4. ANTIPSYCHOTIC [Concomitant]
  5. ANTIDEPRESSANT [Concomitant]
  6. TRAZODONE [Concomitant]
  7. ACETAMINOPHEN W/ PROPOXYPHENE HCL [Concomitant]
  8. ACETAMINOPHEN W/ PROPOXYPHENE HCL [Concomitant]
  9. KLONOPIN [Concomitant]
  10. THYROID TAB [Concomitant]
  11. ESTROGEN [Concomitant]

REACTIONS (10)
  - BLOOD CREATINE PHOSPHOKINASE INCREASED [None]
  - BLOOD MAGNESIUM DECREASED [None]
  - BLOOD PRESSURE DECREASED [None]
  - CARDIAC ARREST [None]
  - CONVULSION [None]
  - FIBRIN D DIMER INCREASED [None]
  - LOSS OF CONSCIOUSNESS [None]
  - OVERDOSE [None]
  - PULMONARY EMBOLISM [None]
  - SINUS TACHYCARDIA [None]
